FAERS Safety Report 9508393 (Version 1)
Quarter: 2013Q1

REPORT INFORMATION
  Report Type: Spontaneous
  Country: US (occurrence: None)
  Receive Date: 20130305
  Receipt Date: 20130305
  Transmission Date: 20140127
  Serious: Yes (Hospitalization)
  Sender: FDA-Public Use
  Company Number: 163-21880-12111824

PATIENT
  Age: 69 Year
  Sex: Male
  Weight: 76.2 kg

DRUGS (11)
  1. REVLIMID (LENALIDOMIDE) [Suspect]
     Indication: AMYLOIDOSIS
     Dosage: 1 IN 2 D
     Route: 048
     Dates: start: 20111201
  2. ASPIRIN (ACETYLSALICYLIC ACID) [Concomitant]
  3. BENEFIBER (POLYCARBOPHIL CALCIUM) [Concomitant]
  4. CARVEDILOL [Concomitant]
  5. EPOGEN (EPOETIN ALFA) [Concomitant]
  6. LAXATIVE (SENNOSIDE A+B) [Concomitant]
  7. LORAZEPAM [Concomitant]
  8. VITAMINS [Concomitant]
  9. NIFEDIPINE ER [Concomitant]
  10. OMEPRAZOLE [Concomitant]
  11. OXYCODONE HCL [Concomitant]

REACTIONS (1)
  - White blood cell count decreased [None]
